FAERS Safety Report 10843165 (Version 1)
Quarter: 2015Q1

REPORT INFORMATION
  Report Type: Spontaneous
  Country: IN (occurrence: IN)
  Receive Date: 20150220
  Receipt Date: 20150220
  Transmission Date: 20150721
  Serious: Yes (Other)
  Sender: FDA-Public Use
  Company Number: IN-CIPLA LTD.-2015IN01213

PATIENT

DRUGS (10)
  1. RISPERIDONE. [Suspect]
     Active Substance: RISPERIDONE
     Indication: HALLUCINATION
  2. OLANZAPINE. [Suspect]
     Active Substance: OLANZAPINE
     Indication: HALLUCINATION
  3. VALPROATE [Suspect]
     Active Substance: VALPROATE SODIUM
     Indication: DELUSION
  4. OLANZAPINE. [Suspect]
     Active Substance: OLANZAPINE
     Indication: DELUSION
  5. CLONAZEPAM. [Suspect]
     Active Substance: CLONAZEPAM
     Indication: HALLUCINATION
  6. CLONAZEPAM. [Suspect]
     Active Substance: CLONAZEPAM
     Indication: DELUSION
  7. VALPROATE [Suspect]
     Active Substance: VALPROATE SODIUM
     Indication: HALLUCINATION
  8. LITHIUM [Suspect]
     Active Substance: LITHIUM CARBONATE
     Indication: DELUSION
  9. RISPERIDONE. [Suspect]
     Active Substance: RISPERIDONE
     Indication: DELUSION
  10. LITHIUM [Suspect]
     Active Substance: LITHIUM CARBONATE
     Indication: HALLUCINATION

REACTIONS (4)
  - Pneumonia [Unknown]
  - Serotonin syndrome [None]
  - Neuroleptic malignant syndrome [None]
  - Toxicity to various agents [None]
